FAERS Safety Report 15300617 (Version 2)
Quarter: 2018Q4

REPORT INFORMATION
  Report Type: Report from Study
  Country: DE (occurrence: DE)
  Receive Date: 20180821
  Receipt Date: 20181003
  Transmission Date: 20190204
  Serious: Yes (Hospitalization)
  Sender: FDA-Public Use
  Company Number: DE-ROCHE-2164424

PATIENT
  Age: 47 Year
  Sex: Female
  Weight: 82.5 kg

DRUGS (6)
  1. TRASTUZUMAB. [Suspect]
     Active Substance: TRASTUZUMAB
     Indication: BREAST CANCER
     Dosage: LAST DOSES OF TRASTUZUMAB PRIOR TO THE EVENT ERYSIPELAS WERE GIVEN ON 09/MAY/2018
     Route: 042
     Dates: start: 20171122
  2. PERTUZUMAB. [Suspect]
     Active Substance: PERTUZUMAB
     Indication: BREAST CANCER
     Dosage: LAST DOSES OF PERTUZUMAB PRIOR TO THE EVENT ERYSIPELAS WERE GIVEN ON 09/MAY/2018
     Route: 042
     Dates: start: 20171122
  3. XGEVA [Suspect]
     Active Substance: DENOSUMAB
     Route: 042
     Dates: start: 20180706
  4. PERTUZUMAB. [Suspect]
     Active Substance: PERTUZUMAB
     Route: 042
     Dates: start: 20180621
  5. XGEVA [Suspect]
     Active Substance: DENOSUMAB
     Indication: METASTASES TO BONE
     Route: 042
     Dates: start: 20180328
  6. TRASTUZUMAB. [Suspect]
     Active Substance: TRASTUZUMAB
     Route: 042
     Dates: start: 20180621

REACTIONS (5)
  - Pruritus [Recovered/Resolved]
  - Erysipelas [Recovered/Resolved]
  - Lacrimation increased [Recovered/Resolved]
  - Ocular hyperaemia [Recovered/Resolved]
  - Infection [Unknown]

NARRATIVE: CASE EVENT DATE: 20180524
